FAERS Safety Report 14930258 (Version 1)
Quarter: 2018Q2

REPORT INFORMATION
  Report Type: Spontaneous
  Country: GB (occurrence: GB)
  Receive Date: 20180523
  Receipt Date: 20180523
  Transmission Date: 20180711
  Serious: Yes (Hospitalization, Other)
  Sender: FDA-Public Use
  Company Number: GB-TEVA-2018-GB-896175

PATIENT
  Age: 83 Year
  Sex: Male
  Weight: 97.52 kg

DRUGS (1)
  1. LEVOFLOXACIN. [Suspect]
     Active Substance: LEVOFLOXACIN
     Indication: LOWER RESPIRATORY TRACT INFECTION
     Route: 042
     Dates: start: 20180312, end: 20180314

REACTIONS (6)
  - Seizure [Unknown]
  - Hallucination [Unknown]
  - Neurotoxicity [Unknown]
  - Psychotic disorder [Unknown]
  - Myoclonus [Unknown]
  - Aggression [Unknown]

NARRATIVE: CASE EVENT DATE: 20180312
